FAERS Safety Report 4789971-1 (Version None)
Quarter: 2005Q3

REPORT INFORMATION
  Report Type: 
  Country: None (occurrence: None)
  Receive Date: 20050914
  Receipt Date: 20040927
  Transmission Date: 20060218
  Serious: Yes (Hospitalization)
  Sender: FDA-Public Use
  Company Number: 163-20785-04090682

PATIENT
  Age: 67 Year
  Sex: Male
  Weight: 78.1094 kg

DRUGS (3)
  1. THALOMID [Suspect]
     Indication: RENAL CELL CARCINOMA STAGE IV
     Dosage: 100 MG, DAILY, ORAL
     Route: 048
     Dates: start: 20040809, end: 20040913
  2. ROFERON-A [Concomitant]
  3. PROLEUKIN [Concomitant]

REACTIONS (6)
  - DIARRHOEA [None]
  - DYSPNOEA [None]
  - MENTAL STATUS CHANGES [None]
  - NAUSEA [None]
  - OEDEMA PERIPHERAL [None]
  - VOMITING [None]
